FAERS Safety Report 8325497-6 (Version None)
Quarter: 2012Q2

REPORT INFORMATION
  Report Type: 
  Country: None (occurrence: None)
  Receive Date: 20120501
  Receipt Date: 20100628
  Transmission Date: 20120825
  Serious: No
  Sender: FDA-Public Use
  Company Number: US-TEVA-2010002541

PATIENT
  Sex: Male

DRUGS (2)
  1. NUVIGIL [Suspect]
     Route: 048
     Dates: start: 20100301, end: 20100416
  2. PROVIGIL [Suspect]
     Route: 048
     Dates: end: 20100301

REACTIONS (9)
  - PANIC ATTACK [None]
  - ANXIETY [None]
  - PALPITATIONS [None]
  - DRY MOUTH [None]
  - HEART RATE INCREASED [None]
  - HYPERHIDROSIS [None]
  - NECK PAIN [None]
  - HYPOAESTHESIA [None]
  - NERVOUSNESS [None]
